FAERS Safety Report 12326448 (Version 1)
Quarter: 2016Q2

REPORT INFORMATION
  Report Type: Report from Study
  Country: CR (occurrence: CR)
  Receive Date: 20160503
  Receipt Date: 20160503
  Transmission Date: 20160815
  Serious: No
  Sender: FDA-Public Use
  Company Number: PHHY2015CR162098

PATIENT
  Age: 57 Year
  Sex: Female

DRUGS (1)
  1. TASIGNA [Suspect]
     Active Substance: NILOTINIB
     Indication: PRODUCT USED FOR UNKNOWN INDICATION
     Route: 065

REACTIONS (9)
  - Dizziness [Unknown]
  - Fatigue [Unknown]
  - Inflammation [Unknown]
  - Drooling [Unknown]
  - Vomiting [Unknown]
  - Hypothyroidism [Unknown]
  - Thyroid disorder [Unknown]
  - Hypersensitivity [Unknown]
  - Dyspepsia [Unknown]
